FAERS Safety Report 13389692 (Version 2)
Quarter: 2017Q2

REPORT INFORMATION
  Report Type: Report from Study
  Country: CO (occurrence: CO)
  Receive Date: 20170331
  Receipt Date: 20170425
  Transmission Date: 20170830
  Serious: Yes (Death)
  Sender: FDA-Public Use
  Company Number: CO-ASTRAZENECA-2017SE32122

PATIENT
  Age: 20884 Day
  Sex: Female

DRUGS (1)
  1. FASLODEX [Suspect]
     Active Substance: FULVESTRANT
     Indication: BREAST CANCER FEMALE
     Dosage: 2 SYRINGES 250 MG EACH ONE, MONTHLY
     Route: 030
     Dates: start: 20170103, end: 20170127

REACTIONS (1)
  - Death [Fatal]

NARRATIVE: CASE EVENT DATE: 20170127
